FAERS Safety Report 8450876-6 (Version None)
Quarter: 2012Q2

REPORT INFORMATION
  Report Type: 
  Country: None (occurrence: None)
  Receive Date: 20120615
  Receipt Date: 20120615
  Transmission Date: 20120825
  Serious: Yes (Hospitalization)
  Sender: FDA-Public Use
  Company Number: None

PATIENT
  Age: 93 Year
  Sex: Male
  Weight: 93.2 kg

DRUGS (1)
  1. CARVEDILOL [Suspect]
     Indication: CARDIAC FAILURE CONGESTIVE
     Dosage: 1 TAB BID PO
     Route: 048
     Dates: start: 20120322, end: 20120325

REACTIONS (3)
  - HYPOTENSION [None]
  - CARDIAC FAILURE [None]
  - DIZZINESS [None]
